FAERS Safety Report 9609314 (Version 1)
Quarter: 2013Q4

REPORT INFORMATION
  Report Type: Spontaneous
  Country: US (occurrence: US)
  Receive Date: 20131009
  Receipt Date: 20131009
  Transmission Date: 20140711
  Serious: No
  Sender: FDA-Public Use
  Company Number: US-009507513-1310USA001407

PATIENT
  Age: 74 Year
  Sex: Female

DRUGS (8)
  1. DULERA [Suspect]
     Indication: ASTHMA
     Dosage: 200/5 MICROGRAM-ONE PUFF, TWICE DAILY
     Route: 055
     Dates: start: 201309
  2. PROVENTIL [Suspect]
     Dosage: TWO PUFFS EVERY 4 TO 6 HOURS
     Route: 055
  3. BENAZEPRIL HYDROCHLORIDE [Concomitant]
  4. AMLODIPINE [Concomitant]
  5. METFORMIN [Concomitant]
  6. ZAFIRLUKAST [Concomitant]
  7. CETIRIZINE HYDROCHLORIDE [Concomitant]
  8. OMEPRAZOLE [Concomitant]

REACTIONS (1)
  - Muscle spasms [Not Recovered/Not Resolved]
